FAERS Safety Report 5160206-3 (Version None)
Quarter: 2006Q4

REPORT INFORMATION
  Report Type: 
  Country: None (occurrence: None)
  Receive Date: 20061129
  Receipt Date: 20061117
  Transmission Date: 20070319
  Serious: Yes (Other)
  Sender: FDA-Public Use
  Company Number: DE-PURDUE-DEU_2006_0002673

PATIENT
  Age: 61 Year
  Sex: Female

DRUGS (5)
  1. OXYCODONE HCL/NALOXONE HCL CR TAB20/10MG [Suspect]
     Indication: PAIN
     Dosage: 40 MG, TID
     Route: 048
     Dates: start: 20061115, end: 20061116
  2. AMIODARONE HCL [Concomitant]
  3. DELIX PLUS [Concomitant]
  4. SALBUTAMOL [Concomitant]
  5. FORADIL [Concomitant]

REACTIONS (3)
  - ANGINA PECTORIS [None]
  - DYSPNOEA [None]
  - INCORRECT DOSE ADMINISTERED [None]
